APPROVED DRUG PRODUCT: ISOPROTERENOL HYDROCHLORIDE
Active Ingredient: ISOPROTERENOL HYDROCHLORIDE
Strength: 0.2MG/ML
Dosage Form/Route: INJECTABLE;INJECTION
Application: A211703 | Product #001 | TE Code: AP
Applicant: HIKMA PHARMACEUTICALS USA INC
Approved: Apr 26, 2023 | RLD: No | RS: No | Type: RX